FAERS Safety Report 24913302 (Version 1)
Quarter: 2025Q1

REPORT INFORMATION
  Report Type: Spontaneous
  Country: CN (occurrence: CN)
  Receive Date: 20250201
  Receipt Date: 20250201
  Transmission Date: 20250409
  Serious: Yes (Hospitalization, Other)
  Sender: RISING PHARMACEUTICALS
  Company Number: CN-RISINGPHARMA-CN-2025RISLIT00052

PATIENT
  Age: 48 Year
  Sex: Female

DRUGS (9)
  1. CLINDAMYCIN PHOSPHATE [Suspect]
     Active Substance: CLINDAMYCIN PHOSPHATE
     Indication: Pneumonia
     Route: 065
  2. HERBALS [Suspect]
     Active Substance: HERBALS
     Indication: Pneumonia
     Route: 065
  3. HYODEOXYCHOLIC ACID [Suspect]
     Active Substance: HYODEOXYCHOLIC ACID
     Indication: Pneumonia
     Route: 065
  4. CHOLIC ACID [Suspect]
     Active Substance: CHOLIC ACID
     Indication: Pneumonia
     Route: 065
  5. HERBALS [Suspect]
     Active Substance: HERBALS
     Indication: Pneumonia
     Route: 065
  6. HERBALS [Suspect]
     Active Substance: HERBALS
     Indication: Pneumonia
     Route: 065
  7. LONICERA JAPONICA FLOWER [Suspect]
     Active Substance: LONICERA JAPONICA FLOWER
     Indication: Pneumonia
     Route: 065
  8. DEXTROSE [Suspect]
     Active Substance: DEXTROSE MONOHYDRATE
     Indication: Pneumonia
     Route: 065
  9. SODIUM CHLORIDE [Suspect]
     Active Substance: SODIUM CHLORIDE
     Indication: Pneumonia
     Route: 065

REACTIONS (9)
  - Loss of consciousness [Recovered/Resolved]
  - Seizure [Recovered/Resolved]
  - Pyrexia [Recovered/Resolved]
  - Restlessness [Recovered/Resolved]
  - Hyperhidrosis [Recovered/Resolved]
  - Incontinence [Recovered/Resolved]
  - Nausea [Recovered/Resolved]
  - Vomiting [Recovered/Resolved]
  - Drug interaction [Unknown]
